APPROVED DRUG PRODUCT: CETIRIZINE HYDROCHLORIDE ALLERGY
Active Ingredient: CETIRIZINE HYDROCHLORIDE
Strength: 5MG
Dosage Form/Route: TABLET;ORAL
Application: A076677 | Product #001
Applicant: MYLAN PHARMACEUTICALS INC
Approved: Dec 27, 2007 | RLD: No | RS: No | Type: OTC